FAERS Safety Report 17557311 (Version 1)
Quarter: 2020Q1

REPORT INFORMATION
  Report Type: Spontaneous
  Country: FR (occurrence: FR)
  Receive Date: 20200318
  Receipt Date: 20200318
  Transmission Date: 20200409
  Serious: Yes (Other)
  Sender: FDA-Public Use
  Company Number: FR-JNJFOC-20200309067

PATIENT
  Age: 42 Year
  Sex: Male

DRUGS (2)
  1. IMOVANE [Concomitant]
     Active Substance: ZOPICLONE
  2. XEPLION [Suspect]
     Active Substance: PALIPERIDONE PALMITATE
     Indication: PRODUCT USED FOR UNKNOWN INDICATION
     Route: 030

REACTIONS (5)
  - Contraindicated product administered [Unknown]
  - Acne [Unknown]
  - Rash [Unknown]
  - Neoplasm malignant [Not Recovered/Not Resolved]
  - Throat tightness [Unknown]
